FAERS Safety Report 19421936 (Version 11)
Quarter: 2021Q3

REPORT INFORMATION
  Report Type: Report from Study
  Country: CA (occurrence: CA)
  Receive Date: 20210616
  Receipt Date: 20210914
  Transmission Date: 20211014
  Serious: Yes (Hospitalization, Other)
  Sender: FDA-Public Use
  Company Number: NVSC2021CA133211

PATIENT
  Age: 16 Year
  Sex: Male
  Weight: 58 kg

DRUGS (21)
  1. CONCERTA [Concomitant]
     Active Substance: METHYLPHENIDATE HYDROCHLORIDE
     Dosage: 36 MG, QD
     Route: 048
     Dates: start: 20210513
  2. BACLOFEN. [Concomitant]
     Active Substance: BACLOFEN
     Indication: MUSCLE SPASTICITY
     Dosage: 15 MG, Q8H
     Route: 048
     Dates: start: 20210513
  3. SECARIS [Concomitant]
     Active Substance: PROPYLENE GLYCOL
     Indication: EPISTAXIS
     Dosage: APPLICATION/Q4H/PRN
     Route: 045
     Dates: start: 20210609
  4. MINOCYCLINE [Concomitant]
     Active Substance: MINOCYCLINE HYDROCHLORIDE
     Indication: ACNE
     Dosage: 50 MG, BID
     Route: 048
     Dates: start: 20210609, end: 20210621
  5. MINOCYCLINE [Concomitant]
     Active Substance: MINOCYCLINE HYDROCHLORIDE
     Dosage: UNK
     Route: 065
     Dates: start: 20210621
  6. TRAMETINIB [Suspect]
     Active Substance: TRAMETINIB
     Indication: NEUROFIBROMA
     Dosage: 1.5 MG, QD
     Route: 048
     Dates: start: 20210528, end: 20210609
  7. IMODIUM [Concomitant]
     Active Substance: LOPERAMIDE HYDROCHLORIDE
     Dosage: UNK
     Route: 065
     Dates: start: 20210612
  8. IMODIUM [Concomitant]
     Active Substance: LOPERAMIDE HYDROCHLORIDE
     Dosage: UNK
     Route: 065
     Dates: start: 20210616
  9. LAX?A?DAY [Concomitant]
     Active Substance: POLYETHYLENE GLYCOL 3350
     Indication: CONSTIPATION
     Dosage: UNK
     Route: 065
  10. CONCERTA [Concomitant]
     Active Substance: METHYLPHENIDATE HYDROCHLORIDE
     Indication: DISTURBANCE IN ATTENTION
     Dosage: UNK
     Route: 065
     Dates: start: 2015
  11. IMODIUM [Concomitant]
     Active Substance: LOPERAMIDE HYDROCHLORIDE
     Dosage: UNK
     Route: 065
     Dates: start: 20210619, end: 20210620
  12. TARO?MOMETASONE [Concomitant]
     Indication: DERMATITIS
     Dosage: APPLICATION/DIE
     Route: 061
     Dates: start: 20210609
  13. SERTLINE [Concomitant]
     Active Substance: SERTRALINE HYDROCHLORIDE
     Indication: MENTAL DISORDER
     Dosage: 100 MG, QD
     Route: 048
     Dates: start: 20210513
  14. TYLENOL [Concomitant]
     Active Substance: ACETAMINOPHEN
     Indication: HEADACHE
     Dosage: 325 MG, PRN
     Route: 048
     Dates: start: 2018
  15. MOUTH WASH [Concomitant]
     Indication: STOMATITIS
     Dosage: 15 ML GARGLING QID/PRN
     Route: 065
     Dates: start: 20210609
  16. ADAPALEN/BENZOYL PEROXIDE [Concomitant]
     Indication: ACNE
     Dosage: 1 APPLICATION, Q3W
     Route: 061
     Dates: start: 20210609
  17. CICLOPIROX. [Concomitant]
     Active Substance: CICLOPIROX
     Indication: DERMATITIS
     Dosage: WASH HAIR 2 TO 3 TIME A WEEK
     Route: 061
     Dates: start: 20210609
  18. TRAMETINIB [Suspect]
     Active Substance: TRAMETINIB
     Indication: GLIOMA
  19. IMODIUM [Concomitant]
     Active Substance: LOPERAMIDE HYDROCHLORIDE
     Indication: DIARRHOEA
     Dosage: UNK
     Route: 065
     Dates: start: 20210529
  20. IMODIUM [Concomitant]
     Active Substance: LOPERAMIDE HYDROCHLORIDE
     Dosage: UNK
     Route: 065
     Dates: start: 20210607, end: 20210608
  21. SECARIS [Concomitant]
     Active Substance: PROPYLENE GLYCOL
     Indication: NASAL DRYNESS

REACTIONS (2)
  - Blood creatine phosphokinase increased [Recovered/Resolved]
  - Colitis [Recovered/Resolved]

NARRATIVE: CASE EVENT DATE: 20210609
